FAERS Safety Report 18870047 (Version 1)
Quarter: 2021Q1

REPORT INFORMATION
  Report Type: Spontaneous
  Country: US (occurrence: US)
  Receive Date: 20210210
  Receipt Date: 20210210
  Transmission Date: 20210420
  Serious: Yes (Other)
  Sender: FDA-Public Use
  Company Number: US-SA-2021SA038252

PATIENT
  Age: 65 Year
  Sex: Female

DRUGS (2)
  1. ZANTAC [Suspect]
     Active Substance: RANITIDINE HYDROCHLORIDE
     Indication: DYSPEPSIA
     Dosage: 75 MG
     Dates: start: 2014, end: 201705
  2. ZANTAC [Suspect]
     Active Substance: RANITIDINE HYDROCHLORIDE
     Indication: ABDOMINAL DISCOMFORT

REACTIONS (5)
  - Hepatic cancer stage III [Recovering/Resolving]
  - Gastric cancer stage IV [Recovering/Resolving]
  - Gastrointestinal carcinoma [Unknown]
  - Injury [Unknown]
  - Small intestine carcinoma [Recovering/Resolving]

NARRATIVE: CASE EVENT DATE: 20140101
